FAERS Safety Report 9229069 (Version 2)
Quarter: 2013Q2

REPORT INFORMATION
  Report Type: Spontaneous
  Country: CO (occurrence: CO)
  Receive Date: 20130412
  Receipt Date: 20130418
  Transmission Date: 20140414
  Serious: Yes (Other)
  Sender: FDA-Public Use
  Company Number: CO-PFIZER INC-2013113081

PATIENT
  Age: 16 Year
  Sex: Male

DRUGS (1)
  1. GENOTROPIN [Suspect]
     Dosage: UNK
     Dates: start: 201211, end: 201301

REACTIONS (5)
  - Developmental hip dysplasia [Unknown]
  - Condition aggravated [Unknown]
  - Groin pain [Unknown]
  - Femoral neck fracture [Unknown]
  - Osteonecrosis [Unknown]
